FAERS Safety Report 10055735 (Version 3)
Quarter: 2014Q2

REPORT INFORMATION
  Report Type: Spontaneous
  Country: US (occurrence: US)
  Receive Date: 20140403
  Receipt Date: 20140505
  Transmission Date: 20141212
  Serious: Yes (Other)
  Sender: FDA-Public Use
  Company Number: US-009507513-1403USA012616

PATIENT
  Sex: Female
  Weight: 65.76 kg

DRUGS (1)
  1. NEXPLANON [Suspect]
     Indication: CONTRACEPTION
     Dosage: 1 ROD, LEFT ARM
     Route: 059
     Dates: start: 20130507, end: 20140325

REACTIONS (7)
  - Heart rate increased [Unknown]
  - Hypersensitivity [Unknown]
  - Paraesthesia oral [Not Recovered/Not Resolved]
  - Food allergy [Unknown]
  - Rash [Unknown]
  - Lip swelling [Recovered/Resolved]
  - Swollen tongue [Unknown]
